FAERS Safety Report 23532352 (Version 1)
Quarter: 2024Q1

REPORT INFORMATION
  Report Type: Spontaneous
  Country: GB (occurrence: GB)
  Receive Date: 20240216
  Receipt Date: 20240216
  Transmission Date: 20240410
  Serious: Yes (Other)
  Sender: FDA-Public Use
  Company Number: None

PATIENT

DRUGS (1)
  1. PICOLAX (ANHYDROUS CITRIC ACID\MAGNESIUM OXIDE\SODIUM PICOSULFATE) [Suspect]
     Active Substance: ANHYDROUS CITRIC ACID\MAGNESIUM OXIDE\SODIUM PICOSULFATE
     Indication: Bowel preparation
     Dosage: UNK
     Route: 065
     Dates: start: 20240131, end: 20240131

REACTIONS (5)
  - Back pain [Recovered/Resolved]
  - Feeling cold [Unknown]
  - Chills [Unknown]
  - Urine output increased [Unknown]
  - Asthenia [Unknown]

NARRATIVE: CASE EVENT DATE: 20240131
